FAERS Safety Report 5085830-8 (Version None)
Quarter: 2006Q3

REPORT INFORMATION
  Report Type: 
  Country: None (occurrence: None)
  Receive Date: 20060817
  Receipt Date: 20060606
  Transmission Date: 20061208
  Serious: Yes (Hospitalization)
  Sender: FDA-Public Use
  Company Number: S06-USA-03196-01

PATIENT
  Age: 74 Year
  Sex: Female

DRUGS (7)
  1. CELEXA [Suspect]
     Indication: DEPRESSION
     Dosage: 25 MG QD PO
     Route: 048
     Dates: start: 20060301, end: 20060523
  2. CELEXA [Suspect]
     Indication: DEPRESSION
     Dates: start: 20040101, end: 20060101
  3. CELEXA [Suspect]
     Indication: DEPRESSION
     Dosage: 20 MG QD PO
     Route: 048
     Dates: start: 20060101, end: 20060301
  4. BLOOD PRESSURE MEDICATION (NOS) [Concomitant]
  5. DIURETICS (NOS) [Concomitant]
  6. POTASSIUM [Concomitant]
  7. VITAMINS [Concomitant]

REACTIONS (7)
  - ABNORMAL BEHAVIOUR [None]
  - AGGRESSION [None]
  - FEELING ABNORMAL [None]
  - HOSTILITY [None]
  - IRRITABILITY [None]
  - LOGORRHOEA [None]
  - MANIA [None]
